FAERS Safety Report 23648569 (Version 1)
Quarter: 2024Q1

REPORT INFORMATION
  Report Type: Spontaneous
  Country: FR (occurrence: FR)
  Receive Date: 20240319
  Receipt Date: 20240319
  Transmission Date: 20240410
  Serious: Yes (Hospitalization)
  Sender: FDA-Public Use
  Company Number: None

PATIENT
  Age: 57 Year
  Sex: Male
  Weight: 77 kg

DRUGS (12)
  1. IDARUBICIN [Suspect]
     Active Substance: IDARUBICIN
     Indication: Acute myeloid leukaemia
     Dosage: 17.5 MG, CYCLIC: 1X/DAY, D1- D5
     Route: 042
     Dates: start: 20231208, end: 20231212
  2. CYTARABINE [Suspect]
     Active Substance: CYTARABINE
     Indication: Acute myeloid leukaemia
     Dosage: 395 MG, CYCLIC: 1X/DAY D1-D7
     Route: 042
     Dates: start: 20231208, end: 20231214
  3. DOVATO [Concomitant]
     Active Substance: DOLUTEGRAVIR SODIUM\LAMIVUDINE
     Indication: HIV infection
     Dosage: 1 DF, 1X/DAY
  4. PIPERACILLIN SODIUM\TAZOBACTAM SODIUM [Concomitant]
     Active Substance: PIPERACILLIN SODIUM\TAZOBACTAM SODIUM
     Indication: Infection
     Dosage: FREQ:6 H;
     Route: 042
     Dates: start: 20231221, end: 20231228
  5. PIPERACILLIN SODIUM\TAZOBACTAM SODIUM [Concomitant]
     Active Substance: PIPERACILLIN SODIUM\TAZOBACTAM SODIUM
     Dosage: FREQ:6 H;
     Route: 042
     Dates: start: 20231209, end: 20231215
  6. POTASSIUM CHLORIDE [Concomitant]
     Active Substance: POTASSIUM CHLORIDE
     Indication: Hypokalaemia
     Dosage: FREQ:8 H;
     Route: 048
  7. POLYETHYLENE GLYCOL 4000 [Concomitant]
     Active Substance: POLYETHYLENE GLYCOL 4000
     Indication: Chemotherapy side effect prophylaxis
     Dosage: 1 DF, 1X/DAY
     Route: 048
  8. ACYCLOVIR [Concomitant]
     Active Substance: ACYCLOVIR
     Indication: Chemotherapy side effect prophylaxis
     Dosage: FREQ:8 H;
     Route: 042
     Dates: start: 20231209
  9. ONDANSETRON [Concomitant]
     Active Substance: ONDANSETRON
     Indication: Chemotherapy side effect prophylaxis
     Dosage: FREQ:8 H;
     Route: 042
     Dates: start: 20231208
  10. VANCOMYCIN [Concomitant]
     Active Substance: VANCOMYCIN
     Indication: Infection
     Dosage: FREQ:12 H;
     Route: 042
     Dates: start: 20231210, end: 20231215
  11. VANCOMYCIN [Concomitant]
     Active Substance: VANCOMYCIN
     Dosage: FREQ:12 H;
     Route: 042
     Dates: start: 20231225, end: 20231228
  12. POSACONAZOLE [Concomitant]
     Active Substance: POSACONAZOLE
     Indication: Chemotherapy side effect prophylaxis
     Dosage: FREQ:8 H;
     Dates: start: 20231209, end: 20231228

REACTIONS (2)
  - Bone marrow failure [Recovered/Resolved]
  - Septic shock [Recovering/Resolving]

NARRATIVE: CASE EVENT DATE: 20231214
